FAERS Safety Report 24716577 (Version 2)
Quarter: 2024Q4

REPORT INFORMATION
  Report Type: Spontaneous
  Country: US (occurrence: US)
  Receive Date: 20241210
  Receipt Date: 20241213
  Transmission Date: 20250114
  Serious: No
  Sender: TORRENT PHARMA INC.
  Company Number: US-TORRENT-00013887

PATIENT
  Sex: Female

DRUGS (1)
  1. ESCITALOPRAM [Suspect]
     Active Substance: ESCITALOPRAM OXALATE
     Indication: Anxiety
     Dosage: ONCE DAILY
     Route: 065
     Dates: start: 20241122, end: 20241127

REACTIONS (2)
  - Hypersensitivity [Unknown]
  - Urticaria [Unknown]

NARRATIVE: CASE EVENT DATE: 20241126
